FAERS Safety Report 9925162 (Version 1)
Quarter: 2014Q1

REPORT INFORMATION
  Report Type: Spontaneous
  Country: US (occurrence: None)
  Receive Date: 20140225
  Receipt Date: 20140225
  Transmission Date: 20141002
  Serious: Yes (Other)
  Sender: FDA-Public Use
  Company Number: None

PATIENT
  Age: 61 Year
  Sex: Female
  Weight: 52.16 kg

DRUGS (1)
  1. RANEXA ER [Suspect]
     Route: 048
     Dates: start: 20140206, end: 20140223

REACTIONS (8)
  - Rash [None]
  - Glossodynia [None]
  - Nausea [None]
  - Constipation [None]
  - Angina pectoris [None]
  - Rash erythematous [None]
  - Chest pain [None]
  - No therapeutic response [None]
